FAERS Safety Report 15299400 (Version 1)
Quarter: 2018Q3

REPORT INFORMATION
  Report Type: Spontaneous
  Country: FR (occurrence: FR)
  Receive Date: 20180821
  Receipt Date: 20180821
  Transmission Date: 20181010
  Serious: Yes (Hospitalization)
  Sender: FDA-Public Use
  Company Number: FR-TEVA-2018-FR-944555

PATIENT
  Age: 25 Year
  Sex: Male
  Weight: 66 kg

DRUGS (3)
  1. DOXORUBICINE TEVA [Suspect]
     Active Substance: DOXORUBICIN
     Indication: OSTEOSARCOMA
     Dosage: 114 MG
     Route: 042
     Dates: start: 20180129, end: 20180312
  2. IFOSFAMIDE EG [Interacting]
     Active Substance: IFOSFAMIDE
     Indication: OSTEOSARCOMA
     Dosage: 5700 MG
     Route: 041
     Dates: start: 20180129, end: 20180312
  3. CISPLATINE MYLAN [Interacting]
     Active Substance: CISPLATIN
     Indication: OSTEOSARCOMA
     Dosage: 200 MG
     Route: 041
     Dates: start: 20180129, end: 20180312

REACTIONS (4)
  - Drug interaction [Recovered/Resolved]
  - Thrombocytopenia [Recovered/Resolved]
  - Anaemia [Recovered/Resolved]
  - Neutropenia [Recovered/Resolved]

NARRATIVE: CASE EVENT DATE: 20180129
